FAERS Safety Report 5225469-4 (Version None)
Quarter: 2007Q1

REPORT INFORMATION
  Report Type: 
  Country: None (occurrence: None)
  Receive Date: 20061201
  Receipt Date: 20060823
  Transmission Date: 20070707
  Serious: No
  Sender: FDA-Public Use
  Company Number: US200608004881

PATIENT
  Age: 44 Year
  Sex: Female

DRUGS (3)
  1. CYMBALTA [Suspect]
     Indication: DEPRESSION
     Dates: start: 20060501
  2. NEXIUM [Concomitant]
  3. BENADRYL /OLD FORM/ (DIPHENHYDRAMINE HYDROCHLORIDE) [Concomitant]

REACTIONS (3)
  - CRYING [None]
  - DRUG INEFFECTIVE [None]
  - NAUSEA [None]
